FAERS Safety Report 15703018 (Version 1)
Quarter: 2018Q4

REPORT INFORMATION
  Report Type: Spontaneous
  Country: US (occurrence: US)
  Receive Date: 20181127
  Receipt Date: 20181127
  Transmission Date: 20190205
  Serious: Yes (Hospitalization)
  Sender: FDA-Public Use
  Company Number: None

PATIENT
  Age: 58 Year
  Sex: Male
  Weight: 85.91 kg

DRUGS (1)
  1. NALOXEGOL OXALATE. [Suspect]
     Active Substance: NALOXEGOL OXALATE
     Dates: end: 20181111

REACTIONS (5)
  - Pain in extremity [None]
  - Arthralgia [None]
  - Nuclear magnetic resonance imaging abnormal [None]
  - Bone lesion [None]
  - Metastases to soft tissue [None]

NARRATIVE: CASE EVENT DATE: 20181111
